FAERS Safety Report 4787167-0 (Version None)
Quarter: 2005Q4

REPORT INFORMATION
  Report Type: 
  Country: None (occurrence: None)
  Receive Date: 20051004
  Receipt Date: 20050608
  Transmission Date: 20060501
  Serious: Yes (Hospitalization, Other)
  Sender: FDA-Public Use
  Company Number: US-MERCK-0506USA01323

PATIENT
  Age: 66 Year
  Sex: Female
  Weight: 114 kg

DRUGS (11)
  1. VIOXX [Suspect]
     Indication: ARTHRALGIA
     Route: 048
     Dates: start: 20000726, end: 20040930
  2. INDOMETHACIN [Concomitant]
     Route: 065
  3. XALATAN [Concomitant]
     Route: 065
  4. ZITHROMAX [Concomitant]
     Route: 065
  5. ACIPHEX [Concomitant]
     Route: 065
  6. METFORMIN [Concomitant]
     Route: 065
  7. ASPIRIN [Concomitant]
     Route: 065
  8. ALLEGRA [Concomitant]
     Route: 065
  9. FLONASE [Concomitant]
     Route: 065
  10. VERELAN [Concomitant]
     Route: 065
  11. NEURONTIN [Concomitant]
     Route: 065

REACTIONS (3)
  - GALLBLADDER DISORDER [None]
  - HERNIA [None]
  - MYOCARDIAL INFARCTION [None]
